FAERS Safety Report 10694575 (Version 1)
Quarter: 2015Q1

REPORT INFORMATION
  Report Type: Spontaneous
  Country: JP (occurrence: JP)
  Receive Date: 20150107
  Receipt Date: 20150107
  Transmission Date: 20150721
  Serious: Yes (Hospitalization)
  Sender: FDA-Public Use
  Company Number: JP-BRISTOL-MYERS SQUIBB COMPANY-BMS-2014-006480

PATIENT
  Sex: Female

DRUGS (2)
  1. ABILIFY [Suspect]
     Active Substance: ARIPIPRAZOLE
     Dosage: 24 UNK, UNK
     Route: 048
     Dates: start: 201407, end: 20141211
  2. ABILIFY [Suspect]
     Active Substance: ARIPIPRAZOLE
     Indication: SENILE PSYCHOSIS
     Dosage: 18 MG, QD
     Route: 048
     Dates: start: 2014

REACTIONS (4)
  - Oedema peripheral [Recovering/Resolving]
  - Cardiac failure [Unknown]
  - Off label use [Unknown]
  - Decubitus ulcer [Unknown]

NARRATIVE: CASE EVENT DATE: 20141219
